FAERS Safety Report 14680831 (Version 1)
Quarter: 2018Q1

REPORT INFORMATION
  Report Type: Spontaneous
  Country: US (occurrence: US)
  Receive Date: 20180326
  Receipt Date: 20180326
  Transmission Date: 20180509
  Serious: Yes (Other)
  Sender: FDA-Public Use
  Company Number: US-OTSUKA-2018_006408

PATIENT
  Age: 8 Year
  Sex: Female

DRUGS (4)
  1. METHYLPHENIDATE. [Suspect]
     Active Substance: METHYLPHENIDATE
     Indication: ATTENTION DEFICIT/HYPERACTIVITY DISORDER
     Dosage: 27 MG, QD
     Route: 048
  2. DEFERASIROX [Interacting]
     Active Substance: DEFERASIROX
     Indication: IRON OVERLOAD
     Dosage: 540 MG, QD (14 MG/KG/D)
     Route: 048
  3. BUSULFAN. [Suspect]
     Active Substance: BUSULFAN
     Indication: PRODUCT USED FOR UNKNOWN INDICATION
     Dosage: UNK
     Route: 042
  4. DEFERASIROX [Interacting]
     Active Substance: DEFERASIROX
     Indication: IRON OVERLOAD
     Dosage: 750 MG, QD (20 MG/KG/D)
     Route: 048

REACTIONS (1)
  - Drug interaction [Unknown]
